FAERS Safety Report 19486115 (Version 1)
Quarter: 2021Q3

REPORT INFORMATION
  Report Type: Spontaneous
  Country: JP (occurrence: JP)
  Receive Date: 20210702
  Receipt Date: 20210702
  Transmission Date: 20211014
  Serious: Yes (Other)
  Sender: FDA-Public Use
  Company Number: JP-BAUSCH-BL-2021-007709

PATIENT
  Age: 64 Year
  Sex: Female

DRUGS (4)
  1. CRAVIT OPHTHALMIC SOLUTION 1.5% [Concomitant]
     Indication: PROPHYLAXIS
     Dosage: OPHTHALMIC SOLUTION
     Route: 047
     Dates: start: 20201120, end: 20201222
  2. BRONUCK OPHTHALMIC SOLUTION 0.1% [Suspect]
     Active Substance: BROMFENAC SODIUM
     Indication: IRITIS
     Dosage: RIGHT EYE TWICE A DAY
     Route: 047
     Dates: start: 20201120, end: 20201222
  3. FLUMETHOLON OPHTHALMIC SOLUTION 0.1% [Concomitant]
     Indication: POSTOPERATIVE CARE
     Dosage: OPHTHALMIC SUSPENSION
     Route: 047
     Dates: start: 20201120, end: 20201222
  4. ATROPINE OPHTHALMIC SOLUTION 1% [Concomitant]
     Indication: POSTOPERATIVE CARE
     Dosage: OPHTHALMIC SOLUTION
     Route: 047
     Dates: start: 20201120, end: 20201128

REACTIONS (1)
  - Corneal perforation [Unknown]

NARRATIVE: CASE EVENT DATE: 20201219
